APPROVED DRUG PRODUCT: HEPARIN SODIUM
Active Ingredient: HEPARIN SODIUM
Strength: 2,500 UNITS/ML
Dosage Form/Route: INJECTABLE;INJECTION
Application: A088099 | Product #001
Applicant: HOSPIRA INC
Approved: Apr 28, 1983 | RLD: No | RS: No | Type: DISCN